FAERS Safety Report 5699375-5 (Version None)
Quarter: 2008Q2

REPORT INFORMATION
  Report Type: 
  Country: None (occurrence: None)
  Receive Date: 20080407
  Receipt Date: 20080324
  Transmission Date: 20081010
  Serious: Yes (Other)
  Sender: FDA-Public Use
  Company Number: 2008S1005112

PATIENT
  Sex: Male

DRUGS (2)
  1. LORAZEPAM [Suspect]
     Dosage: INTRAUTERINE
     Route: 015
  2. SERTRALINE [Suspect]
     Dosage: INTRAUTERINE
     Route: 015

REACTIONS (6)
  - DRUG EXPOSURE DURING PREGNANCY [None]
  - HYPERTONIA NEONATAL [None]
  - HYPOPNOEA [None]
  - NEONATAL DISORDER [None]
  - NEONATAL RESPIRATORY ACIDOSIS [None]
  - PREMATURE BABY [None]
